FAERS Safety Report 9171672 (Version 1)
Quarter: 2013Q1

REPORT INFORMATION
  Report Type: Spontaneous
  Country: US (occurrence: None)
  Receive Date: 20130313
  Receipt Date: 20130313
  Transmission Date: 20140127
  Serious: Yes (Hospitalization)
  Sender: FDA-Public Use
  Company Number: NSR_01054_2013

PATIENT
  Age: 23 Month
  Sex: Male

DRUGS (1)
  1. BACLOFEN [Suspect]
     Indication: PRODUCT USED FOR UNKNOWN INDICATION
     Dosage: DF UNTIL UNKNOWN

REACTIONS (8)
  - Toxicity to various agents [None]
  - Fall [None]
  - Head injury [None]
  - Hypotonia [None]
  - Unresponsive to stimuli [None]
  - Areflexia [None]
  - Electroencephalogram abnormal [None]
  - Overdose [None]
